FAERS Safety Report 6583577-X (Version None)
Quarter: 2010Q1

REPORT INFORMATION
  Report Type: 
  Country: None (occurrence: None)
  Receive Date: 20100216
  Receipt Date: 20100215
  Transmission Date: 20100710
  Serious: Yes (Hospitalization)
  Sender: FDA-Public Use
  Company Number: JP-ABBOTT-10P-087-0623532-00

PATIENT
  Sex: Female

DRUGS (5)
  1. LEUPLIN FOR INJECTION 1.88 MG [Suspect]
     Indication: MENORRHAGIA
     Route: 058
     Dates: start: 20100127
  2. LEUPLIN FOR INJECTION 1.88 MG [Suspect]
     Indication: PROPHYLAXIS
  3. FESIN [Concomitant]
     Indication: IRON DEFICIENCY ANAEMIA
     Route: 042
     Dates: start: 20100114, end: 20100127
  4. ADONA [Concomitant]
     Indication: MENORRHAGIA
     Route: 041
     Dates: start: 20100127, end: 20100127
  5. RIKAVARIN [Concomitant]
     Indication: MENORRHAGIA
     Route: 041
     Dates: start: 20100127, end: 20100127

REACTIONS (6)
  - BLOOD PRESSURE DECREASED [None]
  - CHEST PAIN [None]
  - CHILLS [None]
  - COUGH [None]
  - OROPHARYNGEAL DISCOMFORT [None]
  - URTICARIA [None]
